FAERS Safety Report 14503281 (Version 1)
Quarter: 2018Q1

REPORT INFORMATION
  Report Type: Spontaneous
  Country: US (occurrence: US)
  Receive Date: 20180208
  Receipt Date: 20180208
  Transmission Date: 20180509
  Serious: No
  Sender: FDA-Public Use
  Company Number: US-JNJFOC-20171208428

PATIENT
  Sex: Male

DRUGS (4)
  1. ROGAINE [Suspect]
     Active Substance: MINOXIDIL
     Indication: ALOPECIA
     Route: 061
     Dates: end: 20171105
  2. ROGAINE [Suspect]
     Active Substance: MINOXIDIL
     Route: 065
  3. ROGAINE [Suspect]
     Active Substance: MINOXIDIL
     Route: 061
  4. ROGAINE [Suspect]
     Active Substance: MINOXIDIL
     Indication: ALOPECIA
     Route: 065

REACTIONS (3)
  - Acne [Recovering/Resolving]
  - Pruritus [Recovering/Resolving]
  - Application site rash [Unknown]
